FAERS Safety Report 5534461-1 (Version None)
Quarter: 2007Q4

REPORT INFORMATION
  Report Type: 
  Country: None (occurrence: None)
  Receive Date: 20071205
  Receipt Date: 20071128
  Transmission Date: 20080405
  Serious: Yes (Hospitalization)
  Sender: FDA-Public Use
  Company Number: B0498295A

PATIENT
  Age: 87 Year
  Sex: Female

DRUGS (6)
  1. AUGMENTIN '125' [Suspect]
     Indication: URINARY TRACT INFECTION
     Dosage: 1G TWICE PER DAY
     Route: 048
     Dates: start: 20071002, end: 20071011
  2. AMIODARONE HCL [Suspect]
     Dosage: 200MG PER DAY
     Route: 065
  3. PREVISCAN [Suspect]
     Dosage: 15MG PER DAY
     Route: 048
     Dates: start: 20070401
  4. CIFLOX [Suspect]
     Indication: URINARY TRACT INFECTION
     Dosage: 500MG TWICE PER DAY
     Route: 048
     Dates: start: 20071012, end: 20071016
  5. INEXIUM [Concomitant]
  6. CLINUTREN [Concomitant]

REACTIONS (4)
  - DRUG INTERACTION [None]
  - HAEMATURIA [None]
  - HAEMORRHAGE [None]
  - KAOLIN CEPHALIN CLOTTING TIME ABNORMAL [None]
